FAERS Safety Report 9555093 (Version 1)
Quarter: 2013Q3

REPORT INFORMATION
  Report Type: Spontaneous
  Country: US (occurrence: None)
  Receive Date: 20130724
  Receipt Date: 20130724
  Transmission Date: 20140515
  Serious: No
  Sender: FDA-Public Use
  Company Number: PHEH2013US006019

PATIENT
  Age: 31 Year
  Sex: Female

DRUGS (1)
  1. GILENYA (FINGOLIMOD) CAPSULE, 0.5MG [Suspect]
     Indication: MULTIPLE SCLEROSIS
     Route: 048
     Dates: start: 20130312

REACTIONS (5)
  - Muscle twitching [None]
  - Abdominal pain [None]
  - Somnolence [None]
  - Hypoaesthesia [None]
  - Headache [None]
